FAERS Safety Report 5700998-5 (Version None)
Quarter: 2008Q2

REPORT INFORMATION
  Report Type: 
  Country: None (occurrence: None)
  Receive Date: 20080410
  Receipt Date: 20080402
  Transmission Date: 20081010
  Serious: Yes (Hospitalization)
  Sender: FDA-Public Use
  Company Number: JP-JNJFOC-20080401882

PATIENT
  Age: 43 Year
  Sex: Female

DRUGS (12)
  1. RISPERDAL [Suspect]
     Indication: SCHIZOPHRENIA
     Route: 048
  2. ZOTEPINE [Suspect]
     Indication: DRUG USE FOR UNKNOWN INDICATION
     Route: 048
  3. NULOTAN [Concomitant]
  4. SPIRONOLACTONE [Concomitant]
  5. FERROMIA [Concomitant]
  6. GASTER D [Concomitant]
  7. DORNALIN [Concomitant]
  8. CONIEL [Concomitant]
  9. TANATRIL [Concomitant]
  10. WARFARIN SODIUM [Concomitant]
  11. POTASSIUM GLUCONATE TAB [Concomitant]
  12. GASMOTIN [Concomitant]

REACTIONS (5)
  - CARDIAC FAILURE [None]
  - PNEUMONIA [None]
  - PULMONARY THROMBOSIS [None]
  - PYREXIA [None]
  - URINARY TRACT INFECTION [None]
